FAERS Safety Report 5020041-3 (Version None)
Quarter: 2006Q2

REPORT INFORMATION
  Report Type: 
  Country: None (occurrence: None)
  Receive Date: 20060607
  Receipt Date: 20060504
  Transmission Date: 20061013
  Serious: Yes (Other)
  Sender: FDA-Public Use
  Company Number: BPC-ZN-06-229

PATIENT
  Age: 24 Year
  Sex: Female
  Weight: 48.2 kg

DRUGS (1)
  1. ZYBAN [Suspect]
     Indication: DRUG USE FOR UNKNOWN INDICATION
     Dosage: 150MG PER DAY
     Route: 048
     Dates: start: 20060425, end: 20060430

REACTIONS (6)
  - CONVULSION [None]
  - DRUG EXPOSURE DURING PREGNANCY [None]
  - DRY MOUTH [None]
  - DYSKINESIA [None]
  - MOOD SWINGS [None]
  - PREGNANCY [None]
